FAERS Safety Report 23820518 (Version 2)
Quarter: 2024Q2

REPORT INFORMATION
  Report Type: Spontaneous
  Country: CA (occurrence: CA)
  Receive Date: 20240506
  Receipt Date: 20240513
  Transmission Date: 20240716
  Serious: Yes (Other)
  Sender: FDA-Public Use
  Company Number: CA-SANDOZ-SDZ2024CA010840

PATIENT
  Age: 20 Year
  Sex: Male

DRUGS (15)
  1. AZATHIOPRINE [Suspect]
     Active Substance: AZATHIOPRINE
     Indication: Immunosuppression
     Dosage: UNK
     Route: 065
  2. AZATHIOPRINE [Suspect]
     Active Substance: AZATHIOPRINE
     Indication: Stiff person syndrome
  3. BENLYSTA [Suspect]
     Active Substance: BELIMUMAB
     Indication: Immunosuppression
     Dosage: UNK
     Route: 065
  4. BENLYSTA [Suspect]
     Active Substance: BELIMUMAB
     Indication: Stiff person syndrome
  5. HUMAN IMMUNOGLOBULIN G [Suspect]
     Active Substance: HUMAN IMMUNOGLOBULIN G
     Indication: Stiff person syndrome
     Dosage: UNK
     Route: 042
  6. MYCOPHENOLATE MOFETIL [Suspect]
     Active Substance: MYCOPHENOLATE MOFETIL
     Indication: Immunosuppression
     Dosage: UNK
     Route: 065
  7. MYCOPHENOLATE MOFETIL [Suspect]
     Active Substance: MYCOPHENOLATE MOFETIL
     Indication: Stiff person syndrome
  8. MENINGOCOCCAL POLYSACCHARIDE VACCINE A NOS [Suspect]
     Active Substance: MENINGOCOCCAL POLYSACCHARIDE VACCINE A\NEISSERIA MENINGITIDIS GROUP A CAPSULAR POLYSACCHARIDE ANTIGE
     Indication: Prophylaxis
     Dosage: UNK
     Route: 065
  9. MENINGOCOCCAL POLYSACCHARIDE VACCINE A NOS [Suspect]
     Active Substance: MENINGOCOCCAL POLYSACCHARIDE VACCINE A\NEISSERIA MENINGITIDIS GROUP A CAPSULAR POLYSACCHARIDE ANTIGE
     Indication: Meningococcal infection
  10. PENICILLIN [Suspect]
     Active Substance: PENICILLIN
     Indication: Prophylaxis
     Dosage: UNK
     Route: 065
  11. PENICILLIN [Suspect]
     Active Substance: PENICILLIN
     Indication: Meningococcal infection
  12. PENICILLIN V POTASSIUM [Suspect]
     Active Substance: PENICILLIN V POTASSIUM
     Indication: Prophylaxis
     Dosage: UNK
     Route: 065
  13. PENICILLIN V POTASSIUM [Suspect]
     Active Substance: PENICILLIN V POTASSIUM
     Indication: Meningococcal infection
  14. RITUXIMAB [Suspect]
     Active Substance: RITUXIMAB
     Indication: Stiff person syndrome
     Dosage: UNK
     Route: 065
  15. SOLIRIS [Suspect]
     Active Substance: ECULIZUMAB
     Indication: Stiff person syndrome
     Dosage: UNK
     Route: 042

REACTIONS (3)
  - Vaccination failure [Recovered/Resolved]
  - Meningitis meningococcal [Recovered/Resolved]
  - Drug hypersensitivity [Recovered/Resolved]
